FAERS Safety Report 23703476 (Version 1)
Quarter: 2024Q2

REPORT INFORMATION
  Report Type: Spontaneous
  Country: US (occurrence: None)
  Receive Date: 20240403
  Receipt Date: 20240403
  Transmission Date: 20240716
  Serious: No
  Sender: FDA-Public Use
  Company Number: None

PATIENT
  Age: 47 Year
  Sex: Female

DRUGS (2)
  1. TROPICAMIDE [Suspect]
     Active Substance: TROPICAMIDE
  2. PHENYLEPHRINE [Suspect]
     Active Substance: PHENYLEPHRINE HYDROCHLORIDE

REACTIONS (7)
  - Type I hypersensitivity [None]
  - Type IV hypersensitivity reaction [None]
  - Dysgeusia [None]
  - Salivary hypersecretion [None]
  - Flushing [None]
  - Feeling hot [None]
  - Abdominal pain [None]

NARRATIVE: CASE EVENT DATE: 20240402
